FAERS Safety Report 10853057 (Version 1)
Quarter: 2015Q1

REPORT INFORMATION
  Report Type: Spontaneous
  Country: US (occurrence: None)
  Receive Date: 20150218
  Receipt Date: 20150218
  Transmission Date: 20150721
  Serious: No
  Sender: FDA-Public Use
  Company Number: None

PATIENT
  Age: 53 Year
  Sex: Female

DRUGS (11)
  1. FLONASE [Concomitant]
     Active Substance: FLUTICASONE PROPIONATE
  2. VITAMIN D [Concomitant]
     Active Substance: CHOLECALCIFEROL
  3. COPAXONE [Concomitant]
     Active Substance: GLATIRAMER ACETATE
  4. LISINOPRIL. [Concomitant]
     Active Substance: LISINOPRIL
  5. DONEPEZIL [Concomitant]
     Active Substance: DONEPEZIL
  6. HYDROXYZINE [Concomitant]
     Active Substance: HYDROXYZINE\HYDROXYZINE HYDROCHLORIDE
  7. MOTRIN [Concomitant]
     Active Substance: IBUPROFEN
  8. LOVASTATIN. [Concomitant]
     Active Substance: LOVASTATIN
  9. CYCLOBENZAPRINE [Concomitant]
     Active Substance: CYCLOBENZAPRINE
  10. AMPYRA [Suspect]
     Active Substance: DALFAMPRIDINE
     Indication: MULTIPLE SCLEROSIS
     Route: 048
     Dates: start: 201305, end: 201306
  11. MODAFINIL. [Concomitant]
     Active Substance: MODAFINIL

REACTIONS (1)
  - Insomnia [None]

NARRATIVE: CASE EVENT DATE: 20130603
